FAERS Safety Report 5459695-6 (Version None)
Quarter: 2007Q3

REPORT INFORMATION
  Report Type: 
  Country: None (occurrence: None)
  Receive Date: 20070919
  Receipt Date: 20070907
  Transmission Date: 20080115
  Serious: Yes (Hospitalization, Disabling, Other)
  Sender: FDA-Public Use
  Company Number: US-ROCHE-394796

PATIENT
  Age: 17 Year
  Sex: Male
  Weight: 99.8 kg

DRUGS (4)
  1. ACCUTANE [Suspect]
     Indication: ACNE
     Route: 048
     Dates: start: 19960927, end: 19970224
  2. ACCUTANE [Suspect]
     Dosage: REPORTED AS M-W-F
     Route: 048
     Dates: start: 19970717, end: 19980529
  3. RETIN-A [Concomitant]
     Indication: ACNE
     Route: 061
  4. PRINCIPEN [Concomitant]
     Indication: ACNE
     Route: 048
     Dates: end: 19980727

REACTIONS (30)
  - ABDOMINAL PAIN [None]
  - AMNESIA [None]
  - ANAEMIA [None]
  - ANOREXIA [None]
  - ANXIETY [None]
  - ARTHRALGIA [None]
  - ASTHMA [None]
  - ATTENTION DEFICIT/HYPERACTIVITY DISORDER [None]
  - BACK INJURY [None]
  - BIPOLAR DISORDER [None]
  - BLOOD CHOLESTEROL INCREASED [None]
  - BLOOD TRIGLYCERIDES INCREASED [None]
  - BONE MARROW FAILURE [None]
  - CYCLOTHYMIC DISORDER [None]
  - DEPRESSION [None]
  - DIZZINESS [None]
  - DYSPEPSIA [None]
  - FATIGUE [None]
  - GLOMERULONEPHRITIS MEMBRANOPROLIFERATIVE [None]
  - GLOMERULOSCLEROSIS [None]
  - HEADACHE [None]
  - HYPERTENSION [None]
  - INSOMNIA [None]
  - KIDNEY FIBROSIS [None]
  - KIDNEY TRANSPLANT REJECTION [None]
  - MULTI-ORGAN DISORDER [None]
  - RENAL FAILURE ACUTE [None]
  - SLEEP DISORDER [None]
  - TUBULOINTERSTITIAL NEPHRITIS [None]
  - WEIGHT DECREASED [None]
